FAERS Safety Report 17157163 (Version 1)
Quarter: 2019Q4

REPORT INFORMATION
  Report Type: Spontaneous
  Country: FR (occurrence: FR)
  Receive Date: 20191216
  Receipt Date: 20191216
  Transmission Date: 20200122
  Serious: Yes (Hospitalization)
  Sender: FDA-Public Use
  Company Number: FR-ACCORD-164800

PATIENT
  Age: 68 Year
  Sex: Male
  Weight: 70 kg

DRUGS (3)
  1. FLUOROURACIL ACCORD [Suspect]
     Active Substance: FLUOROURACIL
     Indication: THROAT CANCER
     Route: 041
     Dates: start: 20191007, end: 20191011
  2. CISPLATIN ACCORD [Suspect]
     Active Substance: CISPLATIN
     Indication: THROAT CANCER
     Route: 041
     Dates: start: 20191007, end: 20191007
  3. ERBITUX [Suspect]
     Active Substance: CETUXIMAB
     Indication: THROAT CANCER
     Dosage: 735MG J8, J15
     Route: 041
     Dates: start: 20191018, end: 20191025

REACTIONS (6)
  - Haemophagocytic lymphohistiocytosis [Not Recovered/Not Resolved]
  - Hyperferritinaemia [Not Recovered/Not Resolved]
  - Pancytopenia [Not Recovered/Not Resolved]
  - Pyrexia [Not Recovered/Not Resolved]
  - Hypertriglyceridaemia [Not Recovered/Not Resolved]
  - Off label use [Unknown]

NARRATIVE: CASE EVENT DATE: 201910
